FAERS Safety Report 9135522 (Version 1)
Quarter: 2013Q1

REPORT INFORMATION
  Report Type: Spontaneous
  Country: IT (occurrence: IT)
  Receive Date: 20130304
  Receipt Date: 20130304
  Transmission Date: 20140127
  Serious: Yes (Hospitalization)
  Sender: FDA-Public Use
  Company Number: PHHY2013IT019610

PATIENT
  Age: 63 Year
  Sex: Male

DRUGS (2)
  1. ZOLPIDEM [Suspect]
     Dosage: 10 DF,TOTAL DOSE
     Route: 048
     Dates: start: 20130130, end: 20130130
  2. COMBISARTAN [Concomitant]

REACTIONS (1)
  - Loss of consciousness [Recovering/Resolving]
